FAERS Safety Report 24237487 (Version 11)
Quarter: 2025Q1

REPORT INFORMATION
  Report Type: Report from Study
  Country: CA (occurrence: CA)
  Receive Date: 20240822
  Receipt Date: 20250326
  Transmission Date: 20250408
  Serious: Yes (Disabling)
  Sender: NOVARTIS
  Company Number: CA-002147023-NVSC2024CA147607

PATIENT
  Age: 34 Year
  Sex: Female

DRUGS (7)
  1. KESIMPTA [Suspect]
     Active Substance: OFATUMUMAB
     Indication: Relapsing-remitting multiple sclerosis
     Dosage: 1 DOSAGE FORM, QMO
     Route: 058
     Dates: start: 20240530
  2. KESIMPTA [Suspect]
     Active Substance: OFATUMUMAB
     Indication: Multiple sclerosis
     Dosage: 20 MG, QMO 20 MG/0.4 ML
     Route: 058
  3. KESIMPTA [Suspect]
     Active Substance: OFATUMUMAB
     Dosage: 20 MG, QMO
     Route: 058
  4. KESIMPTA [Suspect]
     Active Substance: OFATUMUMAB
     Route: 058
  5. KESIMPTA [Suspect]
     Active Substance: OFATUMUMAB
     Route: 058
  6. KESIMPTA [Suspect]
     Active Substance: OFATUMUMAB
     Dosage: 1 DOSAGE FORM, QMO (1 INJECTION (20MG/0.4ML)) (1 TIME PER MONTH)
     Route: 058
     Dates: end: 202411
  7. KESIMPTA [Suspect]
     Active Substance: OFATUMUMAB
     Dosage: 1 DOSAGE FORM, QMO (1 INJECTION (20MG/0.4ML)) (1 TIME PER MONTH)
     Route: 058
     Dates: start: 202412

REACTIONS (28)
  - Acne [Not Recovered/Not Resolved]
  - Viral infection [Not Recovered/Not Resolved]
  - Nasal congestion [Not Recovered/Not Resolved]
  - Weight increased [Not Recovered/Not Resolved]
  - Fatigue [Not Recovered/Not Resolved]
  - Alopecia [Not Recovered/Not Resolved]
  - Bacterial vulvovaginitis [Unknown]
  - Vulvovaginal discomfort [Unknown]
  - Vaginal discharge [Unknown]
  - Vaginal odour [Unknown]
  - Vaginal infection [Recovered/Resolved]
  - Injection site pain [Unknown]
  - Oropharyngeal pain [Recovering/Resolving]
  - Rhinorrhoea [Recovering/Resolving]
  - Ear pain [Recovering/Resolving]
  - Dysuria [Recovering/Resolving]
  - Illness [Unknown]
  - Infection [Unknown]
  - Malaise [Unknown]
  - Taste disorder [Unknown]
  - Chromaturia [Unknown]
  - Faeces hard [Unknown]
  - Device breakage [Unknown]
  - Device defective [Unknown]
  - Device issue [Unknown]
  - Drug dose omission by device [Unknown]
  - Incorrect dose administered by device [Unknown]
  - Dyschezia [Unknown]

NARRATIVE: CASE EVENT DATE: 20240716
